FAERS Safety Report 8506911-X (Version None)
Quarter: 2012Q3

REPORT INFORMATION
  Report Type: 
  Country: None (occurrence: None)
  Receive Date: 20120712
  Receipt Date: 20120709
  Transmission Date: 20120928
  Serious: Yes (Hospitalization, Other)
  Sender: FDA-Public Use
  Company Number: US-TEVA-347748USA

PATIENT
  Age: 72 Year
  Sex: Male

DRUGS (3)
  1. DOBUTAMINE HCL [Suspect]
     Dosage: 20 MICROG/KG/MIN
     Route: 041
  2. DOBUTAMINE HCL [Suspect]
     Indication: STRESS ECHOCARDIOGRAM
     Dosage: 10 MICROG/KG/MIN, INCREASED TO 20 MICROG/KG/MIN AT 3-MIN INTERVAL
     Route: 041
  3. WARFARIN SODIUM [Suspect]
     Indication: MITRAL VALVE REPLACEMENT
     Route: 065

REACTIONS (2)
  - HYPERTENSION [None]
  - HAEMORRHAGE INTRACRANIAL [None]
